FAERS Safety Report 4511047-9 (Version None)
Quarter: 2004Q4

REPORT INFORMATION
  Report Type: 
  Country: None (occurrence: None)
  Receive Date: 20041018
  Receipt Date: 20040910
  Transmission Date: 20050328
  Serious: No
  Sender: FDA-Public Use
  Company Number: 208978

PATIENT
  Age: 21 Year
  Weight: 46.3 kg

DRUGS (7)
  1. XOLAIR [Suspect]
     Indication: ASTHMA
     Dosage: 150 MG, Q4W, SUBCUTANEOUS
     Route: 058
     Dates: start: 20040506, end: 20040701
  2. FLONASE (FLUTIASONE HYDROCHLORIDE) [Concomitant]
  3. ADVAIR (FLUTICASONE PROPIONATE, SALMETEROL XINAFOATE) [Concomitant]
  4. ALLEGRA [Concomitant]
  5. PROVENTIL (ALBUTEROL SULFATE, ALBUTEROL) [Concomitant]
  6. ZYRTEC [Concomitant]
  7. SINGULAIR [Concomitant]

REACTIONS (3)
  - CHEST DISCOMFORT [None]
  - HEADACHE [None]
  - SNEEZING [None]
